FAERS Safety Report 4976215-0 (Version None)
Quarter: 2006Q2

REPORT INFORMATION
  Report Type: 
  Country: None (occurrence: None)
  Receive Date: 20060419
  Receipt Date: 20060407
  Transmission Date: 20061013
  Serious: Yes (Hospitalization)
  Sender: FDA-Public Use
  Company Number: CA-BRISTOL-MYERS SQUIBB COMPANY-13341086

PATIENT
  Age: 94 Year
  Sex: Female

DRUGS (1)
  1. COUMADIN [Suspect]

REACTIONS (4)
  - CARDIAC FAILURE CONGESTIVE [None]
  - CONTUSION [None]
  - LOSS OF CONSCIOUSNESS [None]
  - PNEUMONIA [None]
